FAERS Safety Report 5163101-9 (Version None)
Quarter: 2006Q4

REPORT INFORMATION
  Report Type: 
  Country: None (occurrence: None)
  Receive Date: 20061201
  Receipt Date: 20061128
  Transmission Date: 20070319
  Serious: Yes (Hospitalization)
  Sender: FDA-Public Use
  Company Number: US-MERCK-0611USA07368

PATIENT
  Sex: Male
  Weight: 2 kg

DRUGS (1)
  1. DECADRON [Suspect]
     Indication: GLUCOCORTICOIDS DECREASED
     Route: 064

REACTIONS (2)
  - BLOOD GLUCOSE DECREASED [None]
  - FOETAL GROWTH RETARDATION [None]
